FAERS Safety Report 24266152 (Version 2)
Quarter: 2024Q4

REPORT INFORMATION
  Report Type: Spontaneous
  Country: US (occurrence: US)
  Receive Date: 20240830
  Receipt Date: 20241028
  Transmission Date: 20250114
  Serious: Yes (Death)
  Sender: CELLTRION
  Company Number: US-CELLTRION INC.-2024US020492

PATIENT

DRUGS (1)
  1. INFLECTRA [Suspect]
     Active Substance: INFLIXIMAB-DYYB
     Indication: Product used for unknown indication
     Route: 065

REACTIONS (1)
  - Death [Fatal]
